FAERS Safety Report 5869460-3 (Version None)
Quarter: 2008Q3

REPORT INFORMATION
  Report Type: 
  Country: None (occurrence: None)
  Receive Date: 20080829
  Receipt Date: 20080815
  Transmission Date: 20090109
  Serious: Yes (Hospitalization)
  Sender: FDA-Public Use
  Company Number: WAES 0808USA03965

PATIENT
  Age: 49 Year
  Sex: Female

DRUGS (2)
  1. CAP VORINOSTAT [Suspect]
     Indication: NON-SMALL CELL LUNG CANCER
  2. DOCETAXEL [Suspect]
     Indication: NON-SMALL CELL LUNG CANCER
     Dates: start: 20080804, end: 20080808

REACTIONS (2)
  - CHILLS [None]
  - FEBRILE NEUTROPENIA [None]
